FAERS Safety Report 4425744-7 (Version None)
Quarter: 2004Q3

REPORT INFORMATION
  Report Type: 
  Country: None (occurrence: None)
  Receive Date: 20040810
  Receipt Date: 20040726
  Transmission Date: 20050211
  Serious: Yes (Hospitalization)
  Sender: FDA-Public Use
  Company Number: 192999

PATIENT
  Age: 53 Year
  Sex: Female
  Weight: 90 kg

DRUGS (15)
  1. AVONEX [Suspect]
     Indication: MULTIPLE SCLEROSIS
     Dosage: 30 MCG QW IM
     Route: 030
     Dates: start: 19970603
  2. AVONEX [Suspect]
     Indication: MULTIPLE SCLEROSIS
     Dosage: 30 MCG QW IM
     Route: 030
  3. ZANAFLEX [Concomitant]
  4. NEURONTIN [Concomitant]
  5. VITAMIN E [Concomitant]
  6. IMIPRAM TAB [Concomitant]
  7. ESTROGEN [Concomitant]
  8. HYZAAR [Concomitant]
  9. DETROL [Concomitant]
  10. AMITRIPTYLINE HCL [Concomitant]
  11. TRENTAL ^ROUSSEL^ [Concomitant]
  12. CLONOPIN [Concomitant]
  13. SINEMET [Concomitant]
  14. MINOXIDIL [Concomitant]
  15. PROZAC [Concomitant]

REACTIONS (25)
  - ABDOMINAL PAIN [None]
  - AGITATION [None]
  - ANXIETY [None]
  - ATELECTASIS [None]
  - BLOOD PRESSURE INCREASED [None]
  - CHOLECYSTITIS [None]
  - CHOLELITHIASIS [None]
  - CONFUSIONAL STATE [None]
  - DELIRIUM [None]
  - DISEASE RECURRENCE [None]
  - DISORIENTATION [None]
  - DRUG WITHDRAWAL SYNDROME [None]
  - DYSPNOEA [None]
  - FIBRIN D DIMER INCREASED [None]
  - HALLUCINATION, VISUAL [None]
  - HYPERTENSIVE ENCEPHALOPATHY [None]
  - INSOMNIA [None]
  - MALIGNANT HYPERTENSION [None]
  - OVERDOSE [None]
  - PAIN [None]
  - POST PROCEDURAL COMPLICATION [None]
  - PROCEDURAL COMPLICATION [None]
  - PSYCHOTIC DISORDER [None]
  - RESTLESSNESS [None]
  - THERAPEUTIC AGENT TOXICITY [None]
